FAERS Safety Report 5391097-3 (Version None)
Quarter: 2007Q3

REPORT INFORMATION
  Report Type: 
  Country: None (occurrence: None)
  Receive Date: 20070719
  Receipt Date: 20070712
  Transmission Date: 20080115
  Serious: Yes (Other)
  Sender: FDA-Public Use
  Company Number: PHBS2007SE11902

PATIENT
  Sex: Male

DRUGS (1)
  1. RITALIN [Suspect]
     Route: 048

REACTIONS (1)
  - EPILEPSY [None]
